FAERS Safety Report 6695768-8 (Version None)
Quarter: 2010Q2

REPORT INFORMATION
  Report Type: 
  Country: None (occurrence: None)
  Receive Date: 20100421
  Receipt Date: 20100414
  Transmission Date: 20101027
  Serious: Yes (Other)
  Sender: FDA-Public Use
  Company Number: 2010SP022124

PATIENT
  Sex: Female

DRUGS (1)
  1. MERCILON (DESOGESTREL / ETHINYLESTRADIOL / 00570801 / ) [Suspect]
     Indication: CONTRACEPTION
     Dosage: 1 DF; PO
     Route: 048

REACTIONS (1)
  - HYPOTHYROIDISM [None]
